FAERS Safety Report 8299420 (Version 2)
Quarter: 2020Q3

REPORT INFORMATION
  Report Type: Spontaneous
  Country: US (occurrence: BR)
  Receive Date: 20111219
  Receipt Date: 20200908
  Transmission Date: 20201103
  Serious: No
  Sender: FDA-Public Use
  Company Number: BR-BRISTOL-MYERS SQUIBB COMPANY-16291882

PATIENT
  Age: 27 Year
  Sex: Male

DRUGS (5)
  1. AMPHOTERICIN [Concomitant]
     Active Substance: AMPHOTERICIN B
     Dosage: ALSO JAN10
     Route: 042
     Dates: start: 200709
  2. ITRACONAZOLE. [Concomitant]
     Active Substance: ITRACONAZOLE
     Dosage: DOSE REDUCED TO 100MG/DAY
     Route: 048
     Dates: start: 201001
  3. LAMIVUDINE. [Concomitant]
     Active Substance: LAMIVUDINE
     Dosage: INTR ON AUG08 RESTARTED ON JAN09
     Dates: start: 200709
  4. ZIDOVUDINE. [Concomitant]
     Active Substance: ZIDOVUDINE
     Dosage: INTR ON AUG08 RESTARTED ON JAN09
     Dates: start: 200709
  5. EFAVIRENZ. [Suspect]
     Active Substance: EFAVIRENZ
     Indication: HIV INFECTION
     Dosage: INTR ON AUG08 RESTARTED ON JAN09.
     Route: 065
     Dates: start: 200709

REACTIONS (1)
  - No adverse event [Unknown]
